FAERS Safety Report 25240317 (Version 1)
Quarter: 2025Q2

REPORT INFORMATION
  Report Type: Spontaneous
  Country: US (occurrence: US)
  Receive Date: 20250425
  Receipt Date: 20250425
  Transmission Date: 20250716
  Serious: No
  Sender: PFIZER
  Company Number: US-PFIZER INC-202500086978

PATIENT
  Age: 56 Year
  Sex: Female

DRUGS (1)
  1. ELELYSO [Suspect]
     Active Substance: TALIGLUCERASE ALFA
     Route: 042

REACTIONS (1)
  - Influenza [Not Recovered/Not Resolved]

NARRATIVE: CASE EVENT DATE: 20250401
